FAERS Safety Report 4743809-7 (Version None)
Quarter: 2005Q3

REPORT INFORMATION
  Report Type: 
  Country: None (occurrence: None)
  Receive Date: 20050809
  Receipt Date: 20050802
  Transmission Date: 20060218
  Serious: Yes (Hospitalization)
  Sender: FDA-Public Use
  Company Number: 2005FR-00175

PATIENT
  Age: 89 Year
  Sex: Male

DRUGS (5)
  1. ASPIRIN [Suspect]
     Indication: CEREBROVASCULAR ACCIDENT PROPHYLAXIS
     Dosage: 75 MG OD
     Route: 048
     Dates: end: 20041203
  2. DIPYRIDAMOLE [Suspect]
     Dosage: 200 MG BD
  3. LOSARTAN POTASSIUM [Concomitant]
  4. FUROSEMIDE [Concomitant]
  5. DIGOXIN [Concomitant]

REACTIONS (1)
  - HAEMATEMESIS [None]
